FAERS Safety Report 22076419 (Version 1)
Quarter: 2023Q1

REPORT INFORMATION
  Report Type: Report from Study
  Country: SE (occurrence: SE)
  Receive Date: 20230309
  Receipt Date: 20230309
  Transmission Date: 20230418
  Serious: Yes (Hospitalization, Other)
  Sender: FDA-Public Use
  Company Number: SE-ABBVIE-4329597

PATIENT
  Age: 79 Year
  Sex: Male

DRUGS (2)
  1. CARBIDOPA\LEVODOPA [Suspect]
     Active Substance: CARBIDOPA\LEVODOPA
     Indication: Parkinson^s disease
     Dosage: THERAPY DURATION: REMAINED AT 16 HOURS
     Route: 050
     Dates: start: 20210120
  2. CARBIDOPA\LEVODOPA [Suspect]
     Active Substance: CARBIDOPA\LEVODOPA

REACTIONS (2)
  - Cerebrovascular accident [Unknown]
  - Limb discomfort [Unknown]

NARRATIVE: CASE EVENT DATE: 20230302
